FAERS Safety Report 8509600-0 (Version None)
Quarter: 2012Q3

REPORT INFORMATION
  Report Type: 
  Country: None (occurrence: None)
  Receive Date: 20120713
  Receipt Date: 20120706
  Transmission Date: 20120928
  Serious: Yes (Hospitalization, Other)
  Sender: FDA-Public Use
  Company Number: CA-JNJFOC-20120703869

PATIENT
  Sex: Female

DRUGS (4)
  1. REMICADE [Suspect]
     Dosage: 2ND INFUSION
     Route: 042
     Dates: start: 20110101
  2. ALL OTHER THERAPEUTICS [Concomitant]
     Route: 065
  3. PAIN KILLERS [Concomitant]
     Route: 065
  4. REMICADE [Suspect]
     Indication: CROHN'S DISEASE
     Route: 042
     Dates: start: 20110901

REACTIONS (9)
  - HERNIA [None]
  - INFUSION RELATED REACTION [None]
  - ACNE [None]
  - CROHN'S DISEASE [None]
  - OEDEMA PERIPHERAL [None]
  - DENTAL CARIES [None]
  - FEELING ABNORMAL [None]
  - WEIGHT INCREASED [None]
  - LOOSE TOOTH [None]
